FAERS Safety Report 6633341-8 (Version None)
Quarter: 2010Q1

REPORT INFORMATION
  Report Type: 
  Country: None (occurrence: None)
  Receive Date: 20100312
  Receipt Date: 20100301
  Transmission Date: 20100710
  Serious: Yes (Hospitalization)
  Sender: FDA-Public Use
  Company Number: NL-MEDIMMUNE-MEDI-0010711

PATIENT
  Sex: Female
  Weight: 6.48 kg

DRUGS (3)
  1. SYNAGIS [Suspect]
     Route: 030
     Dates: start: 20091109, end: 20100201
  2. FINISTIL [Suspect]
  3. ESOMEPRAZOLE SODIUM [Concomitant]

REACTIONS (3)
  - GASTROINTESTINAL VIRAL INFECTION [None]
  - PYREXIA [None]
  - RESPIRATORY TRACT INFECTION [None]
